FAERS Safety Report 6155795-6 (Version None)
Quarter: 2009Q2

REPORT INFORMATION
  Report Type: 
  Country: None (occurrence: None)
  Receive Date: 20090415
  Receipt Date: 20090406
  Transmission Date: 20091009
  Serious: Yes (Hospitalization, Other)
  Sender: FDA-Public Use
  Company Number: PHHY2009BR13281

PATIENT
  Sex: Female
  Weight: 69 kg

DRUGS (12)
  1. DIOVAN [Suspect]
     Indication: HYPERTENSION
     Dosage: UNK
     Route: 048
     Dates: start: 19990101
  2. ATACAND [Suspect]
     Dosage: 16/12.5 MG
     Dates: start: 20080101
  3. BALCOR [Concomitant]
  4. OLCADIL [Concomitant]
     Indication: DEPRESSION
     Dosage: 1 DF (2 MG) IN THE MORNING, AND 1 DF (2 MG) AT NIGHT
     Route: 048
  5. CITAPROLAN [Concomitant]
     Dosage: 1DF (20 MG) IN THE MORNING
     Route: 048
  6. CLOPIDOGREL BISULFATE [Concomitant]
     Dosage: 1 DF (75 MG) AFTER THE LUNCH AND 1 DF(75 MG) AFTER THE DINNER
     Route: 048
  7. NORFLOXACINE EG [Concomitant]
     Dosage: 400 MG, BID
     Route: 048
  8. DIOSMIN [Concomitant]
     Dosage: 2 DF, QD
     Route: 048
  9. MONOCORDIL [Concomitant]
     Dosage: 1DF (20 MG) IN THE MORNING, 1DF (20 MG) IN THE AFTERNOON AND 1DF (20 MG) AT NIGHT
     Route: 048
  10. CIPROFLOXACIN HYDROCHLORIDE [Concomitant]
     Dosage: 1DF (500 MG) IN THE MORNING
     Route: 048
  11. CRESTOR [Concomitant]
     Indication: HYPERCHOLESTEROLAEMIA
     Dosage: 10 MG, BID
     Route: 048
  12. TAPAZOL [Concomitant]
     Indication: HYPERTHYROIDISM
     Dosage: 1 DF, QD
     Route: 048

REACTIONS (18)
  - ASTHENIA [None]
  - BLOOD PRESSURE INADEQUATELY CONTROLLED [None]
  - BRAIN HYPOXIA [None]
  - CATHETERISATION VENOUS [None]
  - CEREBRAL ATROPHY [None]
  - DEPRESSION [None]
  - DYSPNOEA [None]
  - HYPERTENSION [None]
  - LUNG INFECTION [None]
  - MALAISE [None]
  - RENAL DISORDER [None]
  - STENT PLACEMENT [None]
  - SYNCOPE [None]
  - THROMBOSIS [None]
  - TREMOR [None]
  - URINARY TRACT INFECTION [None]
  - URINE OUTPUT DECREASED [None]
  - VASCULAR GRAFT [None]
